FAERS Safety Report 5721543-4 (Version None)
Quarter: 2008Q2

REPORT INFORMATION
  Report Type: 
  Country: None (occurrence: None)
  Receive Date: 20080428
  Receipt Date: 20080428
  Transmission Date: 20081010
  Serious: Yes (Life-Threatening)
  Sender: FDA-Public Use
  Company Number: None

PATIENT
  Age: 48 Year
  Sex: Female
  Weight: 128.7 kg

DRUGS (1)
  1. FUROSEMIDE [Suspect]
     Indication: OEDEMA
     Dosage: 10MG -1/2 X 20MG- DAILY PO ONCE DAILY
     Route: 048
     Dates: start: 20080424, end: 20080425

REACTIONS (3)
  - DYSPNOEA [None]
  - UNRESPONSIVE TO STIMULI [None]
  - URTICARIA [None]
